FAERS Safety Report 15385586 (Version 1)
Quarter: 2018Q3

REPORT INFORMATION
  Report Type: Spontaneous
  Country: US (occurrence: US)
  Receive Date: 20180907
  Receipt Date: 20180907
  Transmission Date: 20181010
  Serious: Yes (Other)
  Sender: FDA-Public Use
  Company Number: None

PATIENT
  Age: 46 Year
  Sex: Male
  Weight: 121 kg

DRUGS (37)
  1. XOPENEX [Concomitant]
     Active Substance: LEVALBUTEROL HYDROCHLORIDE
  2. ZAROXOLYN [Concomitant]
     Active Substance: METOLAZONE
  3. SINGULAIR [Concomitant]
     Active Substance: MONTELUKAST SODIUM
  4. AUGMENTIN [Concomitant]
     Active Substance: AMOXICILLIN\CLAVULANATE POTASSIUM
  5. BUSPAR [Concomitant]
     Active Substance: BUSPIRONE HYDROCHLORIDE
  6. TEGRETOL [Concomitant]
     Active Substance: CARBAMAZEPINE
  7. KLONOPIN [Concomitant]
     Active Substance: CLONAZEPAM
  8. ENTRESTO [Concomitant]
     Active Substance: SACUBITRIL\VALSARTAN
  9. LORTAB [Concomitant]
     Active Substance: ACETAMINOPHEN\HYDROCODONE BITARTRATE
  10. METHOTREXATE. [Concomitant]
     Active Substance: METHOTREXATE
  11. SPIRIVA [Concomitant]
     Active Substance: TIOTROPIUM BROMIDE MONOHYDRATE
  12. DEMADEX [Concomitant]
     Active Substance: TORSEMIDE
  13. XANAX [Concomitant]
     Active Substance: ALPRAZOLAM
  14. ASTELIN [Concomitant]
     Active Substance: AZELASTINE HYDROCHLORIDE
  15. CABATROL [Concomitant]
  16. FLEXERIL [Concomitant]
     Active Substance: CYCLOBENZAPRINE HYDROCHLORIDE
  17. RENFLEXIS [Suspect]
     Active Substance: INFLIXIMAB-ABDA
     Indication: OSTEOARTHRITIS
     Route: 042
     Dates: start: 20180830
  18. WELLBUTRIN XL [Concomitant]
     Active Substance: BUPROPION HYDROCHLORIDE
  19. CELEBREX [Concomitant]
     Active Substance: CELECOXIB
  20. FLONASE [Concomitant]
     Active Substance: FLUTICASONE PROPIONATE
  21. VIMOVO [Concomitant]
     Active Substance: ESOMEPRAZOLE MAGNESIUM\NAPROXEN
  22. OXYCODONE IR [Concomitant]
     Active Substance: OXYCODONE
  23. QVAR [Concomitant]
     Active Substance: BECLOMETHASONE DIPROPIONATE
  24. CLARINEX [Concomitant]
     Active Substance: DESLORATADINE
  25. BYSTOLIC [Concomitant]
     Active Substance: NEBIVOLOL HYDROCHLORIDE
  26. ZANAFLEX [Concomitant]
     Active Substance: TIZANIDINE HYDROCHLORIDE
  27. NORVASC [Concomitant]
     Active Substance: AMLODIPINE BESYLATE
  28. LIPITOR [Concomitant]
     Active Substance: ATORVASTATIN CALCIUM
  29. FOLVITE [Concomitant]
     Active Substance: FOLIC ACID
  30. REMERON [Concomitant]
     Active Substance: MIRTAZAPINE
  31. ALBUTEROL HFA [Concomitant]
     Active Substance: ALBUTEROL SULFATE
  32. CRESTOR [Concomitant]
     Active Substance: ROSUVASTATIN CALCIUM
  33. DESYREL [Concomitant]
     Active Substance: TRAZODONE HYDROCHLORIDE
  34. AMBIEN [Concomitant]
     Active Substance: ZOLPIDEM TARTRATE
  35. FLECTOR [Concomitant]
     Active Substance: DICLOFENAC EPOLAMINE
  36. DULERA [Concomitant]
     Active Substance: FORMOTEROL FUMARATE DIHYDRATE\MOMETASONE FUROATE
  37. PRED FORTE [Concomitant]
     Active Substance: PREDNISOLONE ACETATE

REACTIONS (8)
  - Pruritus [None]
  - Abdominal pain [None]
  - Arthralgia [None]
  - Chills [None]
  - Palpitations [None]
  - Headache [None]
  - Pyrexia [None]
  - Diarrhoea [None]

NARRATIVE: CASE EVENT DATE: 20180830
